FAERS Safety Report 4430480-7 (Version None)
Quarter: 2004Q3

REPORT INFORMATION
  Report Type: 
  Country: None (occurrence: None)
  Receive Date: 20040721
  Receipt Date: 20040113
  Transmission Date: 20050211
  Serious: Yes (Hospitalization)
  Sender: FDA-Public Use
  Company Number: WAES 0401USA01176

PATIENT
  Age: 75 Year
  Sex: Male

DRUGS (1)
  1. VIOXX [Suspect]
     Indication: PROSTATE CANCER
     Dosage: 50 MG/DAILY/PO
     Route: 048

REACTIONS (1)
  - RENAL FAILURE [None]
